FAERS Safety Report 19066071 (Version 1)
Quarter: 2021Q1

REPORT INFORMATION
  Report Type: Spontaneous
  Country: TH (occurrence: TH)
  Receive Date: 20210327
  Receipt Date: 20210327
  Transmission Date: 20210420
  Serious: Yes (Death, Other)
  Sender: FDA-Public Use
  Company Number: NVSC2021TH070278

PATIENT
  Age: 74 Year
  Sex: Male

DRUGS (1)
  1. ZOMETA [Suspect]
     Active Substance: ZOLEDRONIC ACID
     Indication: MALIGNANT MELANOMA
     Dosage: 4 MG, Q3MO
     Route: 065

REACTIONS (8)
  - Pleural effusion [Unknown]
  - Metastases to bone [Unknown]
  - Product use in unapproved indication [Unknown]
  - Malignant neoplasm progression [Fatal]
  - Metastases to liver [Unknown]
  - Metastases to lung [Unknown]
  - Lymphadenopathy [Unknown]
  - Malignant melanoma [Fatal]

NARRATIVE: CASE EVENT DATE: 20200316
